FAERS Safety Report 20804733 (Version 3)
Quarter: 2022Q4

REPORT INFORMATION
  Report Type: Spontaneous
  Country: US (occurrence: US)
  Receive Date: 20220509
  Receipt Date: 20221004
  Transmission Date: 20230112
  Serious: Yes (Other)
  Sender: FDA-Public Use
  Company Number: US-PFIZER INC-202200642417

PATIENT
  Age: 73 Year
  Sex: Female
  Weight: 83.447 kg

DRUGS (2)
  1. IBRANCE [Suspect]
     Active Substance: PALBOCICLIB
     Indication: Breast cancer metastatic
     Dosage: 75 MG
  2. XGEVA [Suspect]
     Active Substance: DENOSUMAB
     Indication: Metastases to bone
     Dosage: UNK

REACTIONS (8)
  - Diabetes mellitus [Unknown]
  - Stress [Unknown]
  - Discouragement [Unknown]
  - Weight decreased [Unknown]
  - Gingivitis [Unknown]
  - Neoplasm progression [Unknown]
  - Gingival swelling [Unknown]
  - Gingival pain [Unknown]
